FAERS Safety Report 23417091 (Version 6)
Quarter: 2025Q1

REPORT INFORMATION
  Report Type: Spontaneous
  Country: CA (occurrence: CA)
  Receive Date: 20240118
  Receipt Date: 20250306
  Transmission Date: 20250408
  Serious: Yes (Life-Threatening, Hospitalization, Other)
  Sender: NOVARTIS
  Company Number: CA-002147023-NVSC2024CA010111

PATIENT
  Age: 77 Year
  Sex: Female

DRUGS (382)
  1. CARBAMAZEPINE [Suspect]
     Active Substance: CARBAMAZEPINE
     Indication: Seizure prophylaxis
     Route: 065
  2. CARBAMAZEPINE [Suspect]
     Active Substance: CARBAMAZEPINE
     Indication: Product used for unknown indication
     Route: 065
  3. CARBAMAZEPINE [Suspect]
     Active Substance: CARBAMAZEPINE
     Indication: Fibromyalgia
     Dosage: 400 MG, BID
     Route: 065
  4. CARBAMAZEPINE [Suspect]
     Active Substance: CARBAMAZEPINE
     Indication: Pain
     Dosage: 2 DOSAGE FORM, QD
     Route: 065
  5. CARBAMAZEPINE [Suspect]
     Active Substance: CARBAMAZEPINE
     Indication: Seizure
     Route: 065
  6. CARBAMAZEPINE [Suspect]
     Active Substance: CARBAMAZEPINE
     Indication: Prophylaxis
     Dosage: 200 MG, BID
     Route: 065
  7. CARBAMAZEPINE [Suspect]
     Active Substance: CARBAMAZEPINE
     Dosage: 100 MG, BID
     Route: 065
  8. CARBAMAZEPINE [Suspect]
     Active Substance: CARBAMAZEPINE
     Dosage: 2 DOSAGE FORM, BID
     Route: 065
  9. CARBAMAZEPINE [Suspect]
     Active Substance: CARBAMAZEPINE
     Dosage: 500 MG, QD
     Route: 065
  10. CARBAMAZEPINE [Suspect]
     Active Substance: CARBAMAZEPINE
     Dosage: 1 DOSAGE FORM, QD
     Route: 065
  11. CARBAMAZEPINE [Suspect]
     Active Substance: CARBAMAZEPINE
     Dosage: 100 MG, QD
     Route: 065
  12. CARBAMAZEPINE [Suspect]
     Active Substance: CARBAMAZEPINE
     Dosage: 200 MG, QD
     Route: 065
  13. CARBAMAZEPINE [Suspect]
     Active Substance: CARBAMAZEPINE
     Dosage: 100 MG, QD
     Route: 065
  14. CARBAMAZEPINE [Suspect]
     Active Substance: CARBAMAZEPINE
     Dosage: 400 MG, BID
     Route: 065
  15. CARBAMAZEPINE [Suspect]
     Active Substance: CARBAMAZEPINE
     Route: 065
  16. CARBAMAZEPINE [Suspect]
     Active Substance: CARBAMAZEPINE
     Route: 065
  17. CARBAMAZEPINE [Suspect]
     Active Substance: CARBAMAZEPINE
     Route: 065
  18. CARBAMAZEPINE [Suspect]
     Active Substance: CARBAMAZEPINE
     Route: 065
  19. OXCARBAZEPINE [Suspect]
     Active Substance: OXCARBAZEPINE
     Indication: Product used for unknown indication
     Route: 065
  20. ROSUVASTATIN [Suspect]
     Active Substance: ROSUVASTATIN
     Indication: Product used for unknown indication
     Dosage: 20 MG, QD
     Route: 048
  21. ROSUVASTATIN [Suspect]
     Active Substance: ROSUVASTATIN
     Indication: Insomnia
     Route: 048
  22. ROSUVASTATIN [Suspect]
     Active Substance: ROSUVASTATIN
     Indication: Hypertension
     Dosage: 40 MG, QD
     Route: 048
  23. ROSUVASTATIN [Suspect]
     Active Substance: ROSUVASTATIN
     Indication: Coronary artery disease
     Dosage: 20 MG, BID
     Route: 048
  24. ROSUVASTATIN [Suspect]
     Active Substance: ROSUVASTATIN
     Indication: Chronic obstructive pulmonary disease
     Dosage: 10 MG, BID
     Route: 048
  25. ROSUVASTATIN [Suspect]
     Active Substance: ROSUVASTATIN
     Indication: Chest pain
     Dosage: 200 MG, BID
     Route: 048
  26. ROSUVASTATIN [Suspect]
     Active Substance: ROSUVASTATIN
     Indication: Cerebrovascular accident
     Route: 048
  27. ROSUVASTATIN [Suspect]
     Active Substance: ROSUVASTATIN
     Indication: Angina pectoris
     Dosage: 30 MG, QD
     Route: 065
  28. ROSUVASTATIN [Suspect]
     Active Substance: ROSUVASTATIN
     Route: 065
  29. ROSUVASTATIN [Suspect]
     Active Substance: ROSUVASTATIN
     Route: 048
  30. ROSUVASTATIN [Suspect]
     Active Substance: ROSUVASTATIN
     Dosage: 20 MG, QD
     Route: 048
  31. ROSUVASTATIN [Suspect]
     Active Substance: ROSUVASTATIN
     Route: 048
  32. ROSUVASTATIN [Suspect]
     Active Substance: ROSUVASTATIN
     Dosage: 400 MG, QD
     Route: 065
  33. ROSUVASTATIN [Suspect]
     Active Substance: ROSUVASTATIN
     Dosage: 400 MG, QD
     Route: 065
  34. ROSUVASTATIN [Suspect]
     Active Substance: ROSUVASTATIN
     Dosage: 10 MG, QD
     Route: 048
  35. OMEPRAZOLE [Suspect]
     Active Substance: OMEPRAZOLE
     Indication: Small intestine carcinoma
     Dosage: 20 MG, BID
     Route: 048
  36. OMEPRAZOLE [Suspect]
     Active Substance: OMEPRAZOLE
     Indication: Hypertension
     Dosage: 20 MG, QD
     Route: 048
  37. OMEPRAZOLE [Suspect]
     Active Substance: OMEPRAZOLE
     Indication: Duodenal ulcer
     Route: 048
  38. OMEPRAZOLE [Suspect]
     Active Substance: OMEPRAZOLE
     Indication: Coronary artery disease
     Route: 048
  39. OMEPRAZOLE [Suspect]
     Active Substance: OMEPRAZOLE
     Indication: Chest pain
     Route: 048
  40. OMEPRAZOLE [Suspect]
     Active Substance: OMEPRAZOLE
     Indication: Angina pectoris
     Route: 065
  41. AMINOPHYLLINE [Suspect]
     Active Substance: AMINOPHYLLINE
     Indication: Coronary artery disease
     Dosage: 6 MG, QD
     Route: 061
  42. AMINOPHYLLINE [Suspect]
     Active Substance: AMINOPHYLLINE
     Indication: Chest pain
     Route: 065
  43. AMINOPHYLLINE [Suspect]
     Active Substance: AMINOPHYLLINE
     Indication: Angina pectoris
     Route: 065
  44. AMITRIPTYLINE [Suspect]
     Active Substance: AMITRIPTYLINE
     Indication: Thyroid disorder
     Route: 048
  45. AMITRIPTYLINE [Suspect]
     Active Substance: AMITRIPTYLINE
     Indication: Radioactive iodine therapy
     Route: 065
  46. AMITRIPTYLINE [Suspect]
     Active Substance: AMITRIPTYLINE
     Indication: Prophylaxis
     Route: 065
  47. AMITRIPTYLINE [Suspect]
     Active Substance: AMITRIPTYLINE
     Indication: Pain
     Route: 065
  48. AMITRIPTYLINE [Suspect]
     Active Substance: AMITRIPTYLINE
     Indication: Oedema
     Route: 065
  49. AMITRIPTYLINE [Suspect]
     Active Substance: AMITRIPTYLINE
     Indication: Insomnia
     Route: 065
  50. AMITRIPTYLINE [Suspect]
     Active Substance: AMITRIPTYLINE
     Indication: Hypertension
     Route: 065
  51. AMITRIPTYLINE [Suspect]
     Active Substance: AMITRIPTYLINE
     Indication: Fibromyalgia
     Dosage: 750 MG, QD
     Route: 065
  52. AMITRIPTYLINE [Suspect]
     Active Substance: AMITRIPTYLINE
     Indication: Duodenal ulcer
     Dosage: 25 MG, QD
     Route: 065
  53. AMITRIPTYLINE [Suspect]
     Active Substance: AMITRIPTYLINE
     Indication: Dementia
     Route: 065
  54. AMITRIPTYLINE [Suspect]
     Active Substance: AMITRIPTYLINE
     Indication: Coronary artery disease
     Route: 065
  55. AMITRIPTYLINE [Suspect]
     Active Substance: AMITRIPTYLINE
     Indication: Constipation
     Dosage: 75 MG, QD
     Route: 065
  56. AMITRIPTYLINE [Suspect]
     Active Substance: AMITRIPTYLINE
     Indication: Chest pain
     Route: 065
  57. AMITRIPTYLINE [Suspect]
     Active Substance: AMITRIPTYLINE
     Indication: Arthritis
     Route: 065
  58. AMITRIPTYLINE [Suspect]
     Active Substance: AMITRIPTYLINE
     Indication: Angina pectoris
     Dosage: 50 MG, QD
     Route: 065
  59. AMITRIPTYLINE HYDROCHLORIDE [Suspect]
     Active Substance: AMITRIPTYLINE HYDROCHLORIDE
     Indication: Thyroid disorder
     Dosage: 75 MG, QD (1 EVERY 1 DAYS)
     Route: 048
  60. AMITRIPTYLINE HYDROCHLORIDE [Suspect]
     Active Substance: AMITRIPTYLINE HYDROCHLORIDE
     Indication: Radioactive iodine therapy
     Dosage: 50 MG, QD (1 EVERY 1 DAYS)
     Route: 065
  61. AMITRIPTYLINE HYDROCHLORIDE [Suspect]
     Active Substance: AMITRIPTYLINE HYDROCHLORIDE
     Indication: Prophylaxis
     Route: 065
  62. AMITRIPTYLINE HYDROCHLORIDE [Suspect]
     Active Substance: AMITRIPTYLINE HYDROCHLORIDE
     Indication: Pain
     Route: 065
  63. AMITRIPTYLINE HYDROCHLORIDE [Suspect]
     Active Substance: AMITRIPTYLINE HYDROCHLORIDE
     Indication: Oedema
     Route: 065
  64. AMITRIPTYLINE HYDROCHLORIDE [Suspect]
     Active Substance: AMITRIPTYLINE HYDROCHLORIDE
     Indication: Insomnia
     Dosage: 25 MG, QD (1 EVERY 1 DAYS)
     Route: 065
  65. AMITRIPTYLINE HYDROCHLORIDE [Suspect]
     Active Substance: AMITRIPTYLINE HYDROCHLORIDE
     Indication: Hypertension
     Dosage: 5 MG, QD (1 EVERY 1 DAYS)
     Route: 065
  66. AMITRIPTYLINE HYDROCHLORIDE [Suspect]
     Active Substance: AMITRIPTYLINE HYDROCHLORIDE
     Indication: Fibromyalgia
     Route: 065
  67. AMITRIPTYLINE HYDROCHLORIDE [Suspect]
     Active Substance: AMITRIPTYLINE HYDROCHLORIDE
     Indication: Duodenal ulcer
     Route: 065
  68. AMITRIPTYLINE HYDROCHLORIDE [Suspect]
     Active Substance: AMITRIPTYLINE HYDROCHLORIDE
     Indication: Dementia
     Route: 065
  69. AMITRIPTYLINE HYDROCHLORIDE [Suspect]
     Active Substance: AMITRIPTYLINE HYDROCHLORIDE
     Indication: Coronary artery disease
     Route: 065
  70. AMITRIPTYLINE HYDROCHLORIDE [Suspect]
     Active Substance: AMITRIPTYLINE HYDROCHLORIDE
     Indication: Constipation
     Route: 065
  71. AMITRIPTYLINE HYDROCHLORIDE [Suspect]
     Active Substance: AMITRIPTYLINE HYDROCHLORIDE
     Indication: Chest pain
     Route: 065
  72. AMITRIPTYLINE HYDROCHLORIDE [Suspect]
     Active Substance: AMITRIPTYLINE HYDROCHLORIDE
     Indication: Arthritis
     Route: 065
  73. AMITRIPTYLINE HYDROCHLORIDE [Suspect]
     Active Substance: AMITRIPTYLINE HYDROCHLORIDE
     Indication: Angina pectoris
     Route: 065
  74. AMLODIPINE [Suspect]
     Active Substance: AMLODIPINE BESYLATE
     Indication: Hypertension
     Dosage: 50 MG, QD
     Route: 065
  75. AMLODIPINE [Suspect]
     Active Substance: AMLODIPINE BESYLATE
     Indication: Coronary artery disease
     Dosage: 5 MG, QD
     Route: 065
  76. AMLODIPINE [Suspect]
     Active Substance: AMLODIPINE BESYLATE
     Indication: Constipation
     Route: 065
  77. AMLODIPINE [Suspect]
     Active Substance: AMLODIPINE BESYLATE
     Indication: Chest pain
     Route: 065
  78. AMLODIPINE [Suspect]
     Active Substance: AMLODIPINE BESYLATE
     Indication: Angina pectoris
     Route: 065
  79. AMLODIPINE [Suspect]
     Active Substance: AMLODIPINE BESYLATE
     Route: 065
  80. ATROPINE [Suspect]
     Active Substance: ATROPINE
     Indication: Coronary artery disease
     Dosage: 6 MG, QD
     Route: 061
  81. ATROPINE [Suspect]
     Active Substance: ATROPINE
     Indication: Chest pain
     Route: 065
  82. ATROPINE [Suspect]
     Active Substance: ATROPINE
     Indication: Angina pectoris
     Route: 065
  83. MINERALS\VITAMINS [Suspect]
     Active Substance: MINERALS\VITAMINS
     Indication: Product used for unknown indication
     Route: 065
  84. GLYCERIN [Suspect]
     Active Substance: GLYCERIN
     Indication: Product used for unknown indication
     Route: 065
  85. FUROSEMIDE [Suspect]
     Active Substance: FUROSEMIDE
     Indication: Product used for unknown indication
     Dosage: 4 MG, QD
     Route: 065
  86. FUROSEMIDE [Suspect]
     Active Substance: FUROSEMIDE
     Indication: Oedema
     Dosage: 10 MG, QD
     Route: 065
  87. FUROSEMIDE [Suspect]
     Active Substance: FUROSEMIDE
     Indication: Coronary artery disease
     Dosage: 20 MG, QD
     Route: 065
  88. FUROSEMIDE [Suspect]
     Active Substance: FUROSEMIDE
     Indication: Chest pain
     Dosage: 40 MG, QD
     Route: 065
  89. FUROSEMIDE [Suspect]
     Active Substance: FUROSEMIDE
     Indication: Angina pectoris
     Route: 065
  90. FUROSEMIDE [Suspect]
     Active Substance: FUROSEMIDE
     Route: 065
  91. FUROSEMIDE [Suspect]
     Active Substance: FUROSEMIDE
     Route: 065
  92. DIAZEPAM [Suspect]
     Active Substance: DIAZEPAM
     Indication: Hypertension
     Route: 065
  93. DIAZEPAM [Suspect]
     Active Substance: DIAZEPAM
     Indication: Coronary artery disease
     Route: 065
  94. DIAZEPAM [Suspect]
     Active Substance: DIAZEPAM
     Indication: Angina pectoris
  95. DIAZEPAM [Suspect]
     Active Substance: DIAZEPAM
     Indication: Insomnia
  96. NITROGLYCERIN [Suspect]
     Active Substance: NITROGLYCERIN
     Indication: Product used for unknown indication
     Dosage: 0.4 MG, QD
     Route: 065
  97. NITROGLYCERIN [Suspect]
     Active Substance: NITROGLYCERIN
     Indication: Hypertension
     Dosage: 1 DOSAGE FORM, QD
     Route: 065
  98. NITROGLYCERIN [Suspect]
     Active Substance: NITROGLYCERIN
     Indication: Coronary artery disease
     Dosage: 0.6 MG, QD
     Route: 065
  99. NITROGLYCERIN [Suspect]
     Active Substance: NITROGLYCERIN
     Indication: Chest pain
     Route: 065
  100. NITROGLYCERIN [Suspect]
     Active Substance: NITROGLYCERIN
     Indication: Angina pectoris
     Dosage: 20 MG, QD
     Route: 065
  101. NITROGLYCERIN [Suspect]
     Active Substance: NITROGLYCERIN
     Dosage: 0.4 DOSAGE FORM, QD
     Route: 065
  102. NITROGLYCERIN [Suspect]
     Active Substance: NITROGLYCERIN
     Dosage: 6 MG, QD
     Route: 065
  103. NITROGLYCERIN [Suspect]
     Active Substance: NITROGLYCERIN
     Route: 065
  104. LEVOFLOXACIN [Suspect]
     Active Substance: LEVOFLOXACIN
     Indication: Urinary tract infection
     Dosage: 250 MG, QD
     Route: 065
  105. LEVOFLOXACIN [Suspect]
     Active Substance: LEVOFLOXACIN
     Indication: Thyroid disorder
     Dosage: 200 MG, QD
     Route: 065
  106. LEVOFLOXACIN [Suspect]
     Active Substance: LEVOFLOXACIN
     Indication: Radioactive iodine therapy
     Route: 065
  107. LEVOFLOXACIN [Suspect]
     Active Substance: LEVOFLOXACIN
     Indication: Product used for unknown indication
     Dosage: 250 MG, BID
     Route: 065
  108. LEVOFLOXACIN [Suspect]
     Active Substance: LEVOFLOXACIN
     Route: 065
  109. LEVOFLOXACIN [Suspect]
     Active Substance: LEVOFLOXACIN
     Route: 065
  110. LEVOFLOXACIN [Suspect]
     Active Substance: LEVOFLOXACIN
     Dosage: 250 MG, QD
     Route: 065
  111. LEVOFLOXACIN [Suspect]
     Active Substance: LEVOFLOXACIN
     Dosage: 200 MG, QD
     Route: 065
  112. MORPHINE SULFATE [Suspect]
     Active Substance: MORPHINE SULFATE
     Indication: Product used for unknown indication
     Dosage: 1 DOSAGE FORM, QD
     Route: 065
  113. MORPHINE SULFATE [Suspect]
     Active Substance: MORPHINE SULFATE
     Indication: Pain
     Dosage: 20 MG, QD
     Route: 065
  114. MORPHINE SULFATE [Suspect]
     Active Substance: MORPHINE SULFATE
     Indication: Fibromyalgia
     Route: 065
  115. MORPHINE SULFATE [Suspect]
     Active Substance: MORPHINE SULFATE
     Indication: Chest pain
     Dosage: 10 MG, QD
     Route: 065
  116. MORPHINE SULFATE [Suspect]
     Active Substance: MORPHINE SULFATE
     Dosage: 100 MG, QD
     Route: 065
  117. MORPHINE SULFATE [Suspect]
     Active Substance: MORPHINE SULFATE
     Dosage: UNK UNK, QD
     Route: 065
  118. MORPHINE SULFATE [Suspect]
     Active Substance: MORPHINE SULFATE
     Dosage: 2 DOSAGE FORM, QD
     Route: 065
  119. MORPHINE SULFATE [Suspect]
     Active Substance: MORPHINE SULFATE
     Route: 065
  120. MORPHINE SULFATE [Suspect]
     Active Substance: MORPHINE SULFATE
     Dosage: 2 DOSAGE FORM, QD (1 EVERY 1 DAYS)
     Route: 065
  121. MORPHINE SULFATE [Suspect]
     Active Substance: MORPHINE SULFATE
     Route: 065
  122. MORPHINE SULFATE [Suspect]
     Active Substance: MORPHINE SULFATE
     Dosage: 100 MG, QD (1 EVERY 1 DAYS)
     Route: 065
  123. ALBUTEROL [Suspect]
     Active Substance: ALBUTEROL
     Indication: Product used for unknown indication
     Route: 065
  124. ALBUTEROL [Suspect]
     Active Substance: ALBUTEROL
     Indication: Hypertension
     Dosage: 200 MG, BID
     Route: 065
  125. ALBUTEROL [Suspect]
     Active Substance: ALBUTEROL
     Indication: Coronary artery disease
     Dosage: 100 UG, QD
     Route: 065
  126. ALBUTEROL [Suspect]
     Active Substance: ALBUTEROL
     Indication: Chronic obstructive pulmonary disease
     Dosage: 200 MG, QID
     Route: 065
  127. ALBUTEROL [Suspect]
     Active Substance: ALBUTEROL
     Indication: Chest pain
     Dosage: 400 MG, QID
     Route: 065
  128. ALBUTEROL [Suspect]
     Active Substance: ALBUTEROL
     Indication: Angina pectoris
     Dosage: 200 UG, QID
     Route: 065
  129. ALBUTEROL [Suspect]
     Active Substance: ALBUTEROL
     Dosage: 800 MG, QD
     Route: 065
  130. ALBUTEROL [Suspect]
     Active Substance: ALBUTEROL
     Dosage: 100 MG, QD
     Route: 065
  131. ALBUTEROL [Suspect]
     Active Substance: ALBUTEROL
     Dosage: 400 UG, QID
     Route: 065
  132. ALBUTEROL [Suspect]
     Active Substance: ALBUTEROL
     Dosage: 400 MG, QD
     Route: 065
  133. ALBUTEROL [Suspect]
     Active Substance: ALBUTEROL
     Route: 065
  134. ALBUTEROL [Suspect]
     Active Substance: ALBUTEROL
     Dosage: 500 MG, QD
     Route: 065
  135. ALBUTEROL [Suspect]
     Active Substance: ALBUTEROL
     Route: 065
  136. ALBUTEROL [Suspect]
     Active Substance: ALBUTEROL
     Route: 065
  137. ALBUTEROL [Suspect]
     Active Substance: ALBUTEROL
     Route: 065
  138. ALBUTEROL [Suspect]
     Active Substance: ALBUTEROL
     Route: 065
  139. ACEBUTOLOL HYDROCHLORIDE [Suspect]
     Active Substance: ACEBUTOLOL HYDROCHLORIDE
     Indication: Hypertension
     Route: 065
  140. ACEBUTOLOL HYDROCHLORIDE [Suspect]
     Active Substance: ACEBUTOLOL HYDROCHLORIDE
     Indication: Coronary artery disease
     Dosage: 400 MG, BID
     Route: 065
  141. ACEBUTOLOL HYDROCHLORIDE [Suspect]
     Active Substance: ACEBUTOLOL HYDROCHLORIDE
     Indication: Constipation
     Route: 065
  142. ACEBUTOLOL HYDROCHLORIDE [Suspect]
     Active Substance: ACEBUTOLOL HYDROCHLORIDE
     Indication: Chest pain
     Dosage: 400 MG, QD
     Route: 065
  143. ACEBUTOLOL HYDROCHLORIDE [Suspect]
     Active Substance: ACEBUTOLOL HYDROCHLORIDE
     Indication: Angina pectoris
     Dosage: 50 MG, BID (1 EVERY 12 HOURS)
     Route: 065
  144. ACEBUTOLOL HYDROCHLORIDE [Suspect]
     Active Substance: ACEBUTOLOL HYDROCHLORIDE
     Indication: Product used for unknown indication
     Dosage: 500 MG, QD
     Route: 065
  145. ACEBUTOLOL HYDROCHLORIDE [Suspect]
     Active Substance: ACEBUTOLOL HYDROCHLORIDE
     Dosage: 200 MG, BID
     Route: 065
  146. ACEBUTOLOL HYDROCHLORIDE [Suspect]
     Active Substance: ACEBUTOLOL HYDROCHLORIDE
     Dosage: 200 MG, QD
     Route: 065
  147. ACEBUTOLOL HYDROCHLORIDE [Suspect]
     Active Substance: ACEBUTOLOL HYDROCHLORIDE
     Route: 065
  148. ACEBUTOLOL HYDROCHLORIDE [Suspect]
     Active Substance: ACEBUTOLOL HYDROCHLORIDE
     Route: 065
  149. ACEBUTOLOL HYDROCHLORIDE [Suspect]
     Active Substance: ACEBUTOLOL HYDROCHLORIDE
     Route: 065
  150. ACEBUTOLOL HYDROCHLORIDE [Suspect]
     Active Substance: ACEBUTOLOL HYDROCHLORIDE
     Dosage: 100 MG, QD
     Route: 065
  151. ACEBUTOLOL HYDROCHLORIDE [Suspect]
     Active Substance: ACEBUTOLOL HYDROCHLORIDE
     Dosage: 100 MG, BID
     Route: 065
  152. ACEBUTOLOL HYDROCHLORIDE [Suspect]
     Active Substance: ACEBUTOLOL HYDROCHLORIDE
     Dosage: 50 MG, QD (1 EVERY 1 DAYS)
     Route: 065
  153. ACEBUTOLOL HYDROCHLORIDE [Suspect]
     Active Substance: ACEBUTOLOL HYDROCHLORIDE
     Dosage: 800 MG, QD (1 EVERY 1 DAYS)
     Route: 065
  154. ACEBUTOLOL HYDROCHLORIDE [Suspect]
     Active Substance: ACEBUTOLOL HYDROCHLORIDE
     Dosage: 1000 MG, QW (1 EVERY 1 WEEKS)
     Route: 065
  155. ACEBUTOLOL HYDROCHLORIDE [Suspect]
     Active Substance: ACEBUTOLOL HYDROCHLORIDE
     Dosage: 400 MG, QW
     Route: 065
  156. ACETAMINOPHEN\CAFFEINE [Suspect]
     Active Substance: ACETAMINOPHEN\CAFFEINE
     Indication: Pain
     Route: 065
  157. ACETAMINOPHEN\CAFFEINE [Suspect]
     Active Substance: ACETAMINOPHEN\CAFFEINE
     Indication: Fibromyalgia
     Dosage: 650 MG, QD
     Route: 065
  158. ACETAMINOPHEN\CAFFEINE [Suspect]
     Active Substance: ACETAMINOPHEN\CAFFEINE
     Indication: Angina pectoris
     Dosage: 650 MG, QID
     Route: 065
  159. ACETAMINOPHEN\CAFFEINE [Suspect]
     Active Substance: ACETAMINOPHEN\CAFFEINE
     Indication: Hypertension
     Route: 065
  160. ACETAMINOPHEN\CAFFEINE [Suspect]
     Active Substance: ACETAMINOPHEN\CAFFEINE
     Indication: Coronary artery disease
     Route: 065
  161. ACETAMINOPHEN\CAFFEINE [Suspect]
     Active Substance: ACETAMINOPHEN\CAFFEINE
     Indication: Chronic obstructive pulmonary disease
     Dosage: 50 MG, QD (1 EVERY 1 DAYS)
     Route: 065
  162. ACETAMINOPHEN\CAFFEINE [Suspect]
     Active Substance: ACETAMINOPHEN\CAFFEINE
     Indication: Chest pain
     Dosage: 600 MG, QD (1 EVERY 1 DAYS)
     Route: 065
  163. ACETAMINOPHEN\CAFFEINE [Suspect]
     Active Substance: ACETAMINOPHEN\CAFFEINE
     Indication: Cerebrovascular accident
     Dosage: 60 MG, QD (1 EVERY 1 DAYS)
     Route: 065
  164. ACETAMINOPHEN\CAFFEINE [Suspect]
     Active Substance: ACETAMINOPHEN\CAFFEINE
     Indication: Product used for unknown indication
     Route: 065
  165. ACETAMINOPHEN\CAFFEINE [Suspect]
     Active Substance: ACETAMINOPHEN\CAFFEINE
     Indication: Radioactive iodine therapy
     Dosage: 50 MG, QD (1 EVERY 1 DAYS)
     Route: 065
  166. ACETAMINOPHEN\CAFFEINE [Suspect]
     Active Substance: ACETAMINOPHEN\CAFFEINE
     Route: 065
  167. ACETAMINOPHEN\CAFFEINE [Suspect]
     Active Substance: ACETAMINOPHEN\CAFFEINE
     Route: 065
  168. ACETAMINOPHEN\CAFFEINE [Suspect]
     Active Substance: ACETAMINOPHEN\CAFFEINE
     Route: 065
  169. ACETAMINOPHEN\CAFFEINE [Suspect]
     Active Substance: ACETAMINOPHEN\CAFFEINE
     Route: 065
  170. ACETAMINOPHEN\CAFFEINE [Suspect]
     Active Substance: ACETAMINOPHEN\CAFFEINE
     Route: 065
  171. SODIUM PICOSULFATE [Suspect]
     Active Substance: SODIUM PICOSULFATE
     Indication: Constipation
     Route: 065
  172. ACETAMINOPHEN\CODEINE PHOSPHATE\PSEUDOEPHEDRINE HYDROCHLORIDE [Suspect]
     Active Substance: ACETAMINOPHEN\CODEINE PHOSPHATE\PSEUDOEPHEDRINE HYDROCHLORIDE
     Indication: Hypertension
     Route: 065
  173. ACETAMINOPHEN\CODEINE PHOSPHATE\PSEUDOEPHEDRINE HYDROCHLORIDE [Suspect]
     Active Substance: ACETAMINOPHEN\CODEINE PHOSPHATE\PSEUDOEPHEDRINE HYDROCHLORIDE
     Indication: Coronary artery disease
     Route: 065
  174. ACETAMINOPHEN\CODEINE PHOSPHATE\PSEUDOEPHEDRINE HYDROCHLORIDE [Suspect]
     Active Substance: ACETAMINOPHEN\CODEINE PHOSPHATE\PSEUDOEPHEDRINE HYDROCHLORIDE
     Indication: Angina pectoris
     Route: 065
  175. AGGRENOX [Suspect]
     Active Substance: ASPIRIN\DIPYRIDAMOLE
     Indication: Product used for unknown indication
     Route: 065
  176. AGGRENOX [Suspect]
     Active Substance: ASPIRIN\DIPYRIDAMOLE
     Indication: Hypertension
     Route: 065
  177. AGGRENOX [Suspect]
     Active Substance: ASPIRIN\DIPYRIDAMOLE
     Indication: Cerebrovascular accident
     Route: 065
  178. AGGRENOX [Suspect]
     Active Substance: ASPIRIN\DIPYRIDAMOLE
     Indication: Arthritis
     Route: 065
  179. AGGRENOX [Suspect]
     Active Substance: ASPIRIN\DIPYRIDAMOLE
     Route: 065
  180. AGGRENOX [Suspect]
     Active Substance: ASPIRIN\DIPYRIDAMOLE
     Dosage: 2 DOSAGE FORM, QW (1 EVERY 1 WEEKS)
     Route: 065
  181. AGGRENOX [Suspect]
     Active Substance: ASPIRIN\DIPYRIDAMOLE
     Route: 065
  182. AGGRENOX [Suspect]
     Active Substance: ASPIRIN\DIPYRIDAMOLE
     Route: 065
  183. AGGRENOX [Suspect]
     Active Substance: ASPIRIN\DIPYRIDAMOLE
     Dosage: 1 DOSAGE FORM, Q12H (EVERY 12 HOURS)
     Route: 065
  184. MAGNESIUM ALUMINUM SILICATE [Suspect]
     Active Substance: MAGNESIUM ALUMINUM SILICATE
     Indication: Constipation
     Dosage: 620 MG, Q12H (1 EVERY 12 HOURS)
     Route: 065
  185. AMLODIPINE BESYLATE [Suspect]
     Active Substance: AMLODIPINE BESYLATE
     Indication: Coronary artery disease
     Route: 065
  186. AMLODIPINE BESYLATE [Suspect]
     Active Substance: AMLODIPINE BESYLATE
     Indication: Constipation
     Route: 065
  187. AMLODIPINE BESYLATE [Suspect]
     Active Substance: AMLODIPINE BESYLATE
     Indication: Chest pain
     Route: 065
  188. AMLODIPINE BESYLATE [Suspect]
     Active Substance: AMLODIPINE BESYLATE
     Indication: Angina pectoris
     Route: 065
  189. CYCLOBENZAPRINE [Suspect]
     Active Substance: CYCLOBENZAPRINE
     Indication: Seizure prophylaxis
     Route: 065
  190. CYCLOBENZAPRINE [Suspect]
     Active Substance: CYCLOBENZAPRINE
     Indication: Product used for unknown indication
     Route: 065
  191. CYCLOBENZAPRINE [Suspect]
     Active Substance: CYCLOBENZAPRINE
     Indication: Fibromyalgia
     Route: 065
  192. CYCLOBENZAPRINE [Suspect]
     Active Substance: CYCLOBENZAPRINE
     Route: 065
  193. BISACODYL [Suspect]
     Active Substance: BISACODYL
     Indication: Product used for unknown indication
     Route: 065
  194. BISACODYL [Suspect]
     Active Substance: BISACODYL
     Indication: Constipation
     Route: 065
  195. BISACODYL [Suspect]
     Active Substance: BISACODYL
     Route: 065
  196. BISACODYL [Suspect]
     Active Substance: BISACODYL
     Route: 065
  197. CAFFEINE CITRATE [Suspect]
     Active Substance: CAFFEINE CITRATE
     Indication: Product used for unknown indication
     Route: 065
  198. CALCIUM ASCORBATE [Suspect]
     Active Substance: CALCIUM ASCORBATE
     Indication: Product used for unknown indication
     Route: 065
  199. CALCIUM CARBONATE [Suspect]
     Active Substance: CALCIUM CARBONATE
     Indication: Product used for unknown indication
     Route: 065
  200. DIETARY SUPPLEMENT [Suspect]
     Active Substance: DIETARY SUPPLEMENT
     Indication: Product used for unknown indication
     Route: 065
  201. CRANBERRY [Suspect]
     Active Substance: CRANBERRY
     Indication: Product used for unknown indication
     Route: 065
  202. CRANBERRY [Suspect]
     Active Substance: CRANBERRY
     Indication: Bladder disorder
     Route: 065
  203. CRANBERRY [Suspect]
     Active Substance: CRANBERRY
     Route: 065
  204. CYCLOBENZAPRINE [Suspect]
     Active Substance: CYCLOBENZAPRINE
     Indication: Seizure prophylaxis
     Route: 065
  205. CYCLOBENZAPRINE [Suspect]
     Active Substance: CYCLOBENZAPRINE
     Indication: Seizure
     Route: 065
  206. CYCLOBENZAPRINE [Suspect]
     Active Substance: CYCLOBENZAPRINE
     Indication: Product used for unknown indication
     Route: 065
  207. CYCLOBENZAPRINE [Suspect]
     Active Substance: CYCLOBENZAPRINE
     Indication: Pain
     Route: 065
  208. CYCLOBENZAPRINE [Suspect]
     Active Substance: CYCLOBENZAPRINE
     Indication: Fibromyalgia
     Route: 065
  209. CYCLOBENZAPRINE [Suspect]
     Active Substance: CYCLOBENZAPRINE
     Route: 065
  210. CYCLOBENZAPRINE [Suspect]
     Active Substance: CYCLOBENZAPRINE
     Route: 065
  211. CYCLOBENZAPRINE [Suspect]
     Active Substance: CYCLOBENZAPRINE
     Route: 065
  212. CYCLOBENZAPRINE [Suspect]
     Active Substance: CYCLOBENZAPRINE
     Dosage: 15 MG, Q8H (1 EVERY 8 HOURS)
     Route: 065
  213. CYCLOBENZAPRINE [Suspect]
     Active Substance: CYCLOBENZAPRINE
     Route: 065
  214. CYCLOBENZAPRINE [Suspect]
     Active Substance: CYCLOBENZAPRINE
     Route: 065
  215. CYCLOBENZAPRINE [Suspect]
     Active Substance: CYCLOBENZAPRINE
     Dosage: 200 MG, Q12H (1 EVERY 12 HOURS)
     Route: 065
  216. CYCLOBENZAPRINE [Suspect]
     Active Substance: CYCLOBENZAPRINE
     Dosage: 5 MG, Q8H (1 EVERY 8 HOURS)
     Route: 065
  217. CYCLOBENZAPRINE [Suspect]
     Active Substance: CYCLOBENZAPRINE
     Route: 065
  218. CYCLOBENZAPRINE [Suspect]
     Active Substance: CYCLOBENZAPRINE
     Route: 065
  219. CYCLOBENZAPRINE HYDROCHLORIDE [Suspect]
     Active Substance: CYCLOBENZAPRINE HYDROCHLORIDE
     Indication: Product used for unknown indication
     Route: 065
  220. CYCLOBENZAPRINE HYDROCHLORIDE [Suspect]
     Active Substance: CYCLOBENZAPRINE HYDROCHLORIDE
     Route: 065
  221. CYCLOBENZAPRINE HYDROCHLORIDE [Suspect]
     Active Substance: CYCLOBENZAPRINE HYDROCHLORIDE
     Route: 065
  222. CYCLOBENZAPRINE HYDROCHLORIDE [Suspect]
     Active Substance: CYCLOBENZAPRINE HYDROCHLORIDE
     Route: 065
  223. CYCLOBENZAPRINE HYDROCHLORIDE [Suspect]
     Active Substance: CYCLOBENZAPRINE HYDROCHLORIDE
     Dosage: 5 MG, Q12H (1 EVERY 12 HOURS)
     Route: 065
  224. DILTIAZEM HYDROCHLORIDE [Suspect]
     Active Substance: DILTIAZEM HYDROCHLORIDE
     Indication: Product used for unknown indication
     Route: 065
  225. DILTIAZEM HYDROCHLORIDE [Suspect]
     Active Substance: DILTIAZEM HYDROCHLORIDE
     Indication: Hypertension
     Route: 065
  226. DILTIAZEM HYDROCHLORIDE [Suspect]
     Active Substance: DILTIAZEM HYDROCHLORIDE
     Indication: Coronary artery disease
     Route: 065
  227. DILTIAZEM HYDROCHLORIDE [Suspect]
     Active Substance: DILTIAZEM HYDROCHLORIDE
     Indication: Chronic obstructive pulmonary disease
     Route: 065
  228. DILTIAZEM HYDROCHLORIDE [Suspect]
     Active Substance: DILTIAZEM HYDROCHLORIDE
     Indication: Chest pain
     Route: 065
  229. DILTIAZEM HYDROCHLORIDE [Suspect]
     Active Substance: DILTIAZEM HYDROCHLORIDE
     Indication: Angina pectoris
     Route: 065
  230. DILTIAZEM HYDROCHLORIDE [Suspect]
     Active Substance: DILTIAZEM HYDROCHLORIDE
     Route: 065
  231. DILTIAZEM HYDROCHLORIDE [Suspect]
     Active Substance: DILTIAZEM HYDROCHLORIDE
     Route: 065
  232. DILTIAZEM HYDROCHLORIDE [Suspect]
     Active Substance: DILTIAZEM HYDROCHLORIDE
     Route: 065
  233. DILTIAZEM HYDROCHLORIDE [Suspect]
     Active Substance: DILTIAZEM HYDROCHLORIDE
     Route: 065
  234. DILTIAZEM HYDROCHLORIDE [Suspect]
     Active Substance: DILTIAZEM HYDROCHLORIDE
     Route: 065
  235. DILTIAZEM HYDROCHLORIDE [Suspect]
     Active Substance: DILTIAZEM HYDROCHLORIDE
     Route: 065
  236. DILTIAZEM HYDROCHLORIDE [Suspect]
     Active Substance: DILTIAZEM HYDROCHLORIDE
     Route: 065
  237. DILTIAZEM HYDROCHLORIDE [Suspect]
     Active Substance: DILTIAZEM HYDROCHLORIDE
     Route: 065
  238. DIPYRIDAMOLE [Suspect]
     Active Substance: DIPYRIDAMOLE
     Indication: Product used for unknown indication
     Route: 065
  239. DIPYRIDAMOLE [Suspect]
     Active Substance: DIPYRIDAMOLE
     Indication: Cerebrovascular accident
     Route: 065
  240. DIPYRIDAMOLE [Suspect]
     Active Substance: DIPYRIDAMOLE
     Route: 065
  241. DIPYRIDAMOLE [Suspect]
     Active Substance: DIPYRIDAMOLE
     Dosage: 2 DOSAGE FORM, Q12H (1 EVERY 12 HOURS)
     Route: 065
  242. DIPYRIDAMOLE [Suspect]
     Active Substance: DIPYRIDAMOLE
     Route: 065
  243. DIPYRIDAMOLE [Suspect]
     Active Substance: DIPYRIDAMOLE
     Route: 065
  244. DIPYRIDAMOLE [Suspect]
     Active Substance: DIPYRIDAMOLE
     Route: 065
  245. DIPYRIDAMOLE [Suspect]
     Active Substance: DIPYRIDAMOLE
     Route: 065
  246. DIPYRIDAMOLE [Suspect]
     Active Substance: DIPYRIDAMOLE
     Dosage: 1 DOSAGE FORM, Q12H (1 EVERY 12 HOURS)
     Route: 065
  247. DIPYRIDAMOLE [Suspect]
     Active Substance: DIPYRIDAMOLE
     Route: 065
  248. DULCOLAX (BISACODYL) [Suspect]
     Active Substance: BISACODYL
     Indication: Product used for unknown indication
     Route: 065
  249. DULCOLAX (BISACODYL) [Suspect]
     Active Substance: BISACODYL
     Indication: Constipation
     Route: 048
  250. ERGOCALCIFEROL [Suspect]
     Active Substance: ERGOCALCIFEROL
     Indication: Product used for unknown indication
     Route: 065
  251. GALANTAMINE [Suspect]
     Active Substance: GALANTAMINE
     Indication: Dementia
     Route: 065
  252. GALANTAMINE [Suspect]
     Active Substance: GALANTAMINE
     Indication: Pain
     Route: 065
  253. GALANTAMINE [Suspect]
     Active Substance: GALANTAMINE
     Indication: Arthritis
     Route: 065
  254. GALANTAMINE [Suspect]
     Active Substance: GALANTAMINE
     Route: 065
  255. GALANTAMINE [Suspect]
     Active Substance: GALANTAMINE
     Route: 065
  256. GALANTAMINE [Suspect]
     Active Substance: GALANTAMINE
     Route: 065
  257. GALANTAMINE [Suspect]
     Active Substance: GALANTAMINE
     Route: 065
  258. GALANTAMINE [Suspect]
     Active Substance: GALANTAMINE
     Route: 065
  259. GALANTAMINE [Suspect]
     Active Substance: GALANTAMINE
     Route: 065
  260. GLUCOSAMINE SULFATE [Suspect]
     Active Substance: GLUCOSAMINE SULFATE
     Indication: Product used for unknown indication
     Route: 065
  261. GLUCOSAMINE SULFATE [Suspect]
     Active Substance: GLUCOSAMINE SULFATE
     Indication: Pain
     Route: 065
  262. GLUCOSAMINE SULFATE [Suspect]
     Active Substance: GLUCOSAMINE SULFATE
     Indication: Arthritis
     Route: 065
  263. GLYCERIN [Suspect]
     Active Substance: GLYCERIN
     Indication: Product used for unknown indication
     Route: 065
  264. LACTULOSE [Suspect]
     Active Substance: LACTULOSE
     Indication: Thyroid disorder
     Route: 065
  265. LACTULOSE [Suspect]
     Active Substance: LACTULOSE
     Indication: Radioactive iodine therapy
     Route: 048
  266. LACTULOSE [Suspect]
     Active Substance: LACTULOSE
     Indication: Product used for unknown indication
     Route: 048
  267. LACTULOSE [Suspect]
     Active Substance: LACTULOSE
     Indication: Constipation
     Route: 065
  268. LACTULOSE [Suspect]
     Active Substance: LACTULOSE
     Route: 048
  269. LEVOFLOXACIN HEMIHYDRATE [Suspect]
     Active Substance: LEVOFLOXACIN
     Indication: Urinary tract infection
     Route: 065
  270. LEVOFLOXACIN HEMIHYDRATE [Suspect]
     Active Substance: LEVOFLOXACIN
     Indication: Thyroid disorder
     Route: 065
  271. LEVOFLOXACIN HEMIHYDRATE [Suspect]
     Active Substance: LEVOFLOXACIN
     Indication: Radioactive iodine therapy
     Route: 065
  272. LEVOFLOXACIN HEMIHYDRATE [Suspect]
     Active Substance: LEVOFLOXACIN
     Route: 065
  273. LEVOFLOXACIN HEMIHYDRATE [Suspect]
     Active Substance: LEVOFLOXACIN
     Route: 065
  274. LEVOFLOXACIN HEMIHYDRATE [Suspect]
     Active Substance: LEVOFLOXACIN
     Route: 065
  275. LEVOTHYROXINE SODIUM [Suspect]
     Active Substance: LEVOTHYROXINE SODIUM
     Indication: Thyroid disorder
     Route: 065
  276. LEVOTHYROXINE SODIUM [Suspect]
     Active Substance: LEVOTHYROXINE SODIUM
     Indication: Radioactive iodine therapy
     Route: 065
  277. LEVOTHYROXINE SODIUM [Suspect]
     Active Substance: LEVOTHYROXINE SODIUM
     Indication: Product used for unknown indication
     Route: 048
  278. LEVOTHYROXINE SODIUM [Suspect]
     Active Substance: LEVOTHYROXINE SODIUM
     Route: 065
  279. LEVOTHYROXINE SODIUM [Suspect]
     Active Substance: LEVOTHYROXINE SODIUM
     Route: 065
  280. LEVOTHYROXINE SODIUM [Suspect]
     Active Substance: LEVOTHYROXINE SODIUM
     Route: 065
  281. LEVOTHYROXINE SODIUM [Suspect]
     Active Substance: LEVOTHYROXINE SODIUM
     Route: 065
  282. LEVOTHYROXINE SODIUM [Suspect]
     Active Substance: LEVOTHYROXINE SODIUM
     Route: 065
  283. LEVOTHYROXINE SODIUM [Suspect]
     Active Substance: LEVOTHYROXINE SODIUM
     Route: 065
  284. MAGNESIUM HYDROXIDE [Suspect]
     Active Substance: MAGNESIUM HYDROXIDE
     Indication: Product used for unknown indication
     Route: 065
  285. MAGNESIUM HYDROXIDE [Suspect]
     Active Substance: MAGNESIUM HYDROXIDE
     Indication: Constipation
     Route: 065
  286. MAGNESIUM HYDROXIDE [Suspect]
     Active Substance: MAGNESIUM HYDROXIDE
     Route: 065
  287. MAGNESIUM HYDROXIDE [Suspect]
     Active Substance: MAGNESIUM HYDROXIDE
     Route: 065
  288. MAGNESIUM HYDROXIDE [Suspect]
     Active Substance: MAGNESIUM HYDROXIDE
     Dosage: 622 MG, Q12H (1 EVERY 12 HOURS)
     Route: 065
  289. MAGNESIUM HYDROXIDE [Suspect]
     Active Substance: MAGNESIUM HYDROXIDE
     Dosage: 311 MG, Q12H
     Route: 065
  290. MAGNESIUM HYDROXIDE [Suspect]
     Active Substance: MAGNESIUM HYDROXIDE
     Dosage: 1 DOSAGE FORM, Q12H (1 EVERY 12 HOUR )
     Route: 065
  291. MAGNESIUM HYDROXIDE [Suspect]
     Active Substance: MAGNESIUM HYDROXIDE
     Route: 065
  292. MAGNESIUM HYDROXIDE [Suspect]
     Active Substance: MAGNESIUM HYDROXIDE
     Route: 065
  293. MAGNESIUM HYDROXIDE [Suspect]
     Active Substance: MAGNESIUM HYDROXIDE
     Route: 065
  294. MAGNESIUM HYDROXIDE [Suspect]
     Active Substance: MAGNESIUM HYDROXIDE
     Route: 065
  295. MAGNESIUM HYDROXIDE [Suspect]
     Active Substance: MAGNESIUM HYDROXIDE
     Route: 065
  296. MAGNESIUM HYDROXIDE [Suspect]
     Active Substance: MAGNESIUM HYDROXIDE
     Route: 065
  297. NITROGLYCERIN [Suspect]
     Active Substance: NITROGLYCERIN
     Indication: Product used for unknown indication
     Route: 065
  298. NITROGLYCERIN [Suspect]
     Active Substance: NITROGLYCERIN
     Indication: Coronary artery disease
     Route: 065
  299. NITROGLYCERIN [Suspect]
     Active Substance: NITROGLYCERIN
     Indication: Chest pain
     Route: 065
  300. NITROGLYCERIN [Suspect]
     Active Substance: NITROGLYCERIN
     Indication: Angina pectoris
     Route: 065
  301. NITROGLYCERIN [Suspect]
     Active Substance: NITROGLYCERIN
     Route: 065
  302. NITROGLYCERIN [Suspect]
     Active Substance: NITROGLYCERIN
     Route: 065
  303. NITROGLYCERIN [Suspect]
     Active Substance: NITROGLYCERIN
     Route: 065
  304. NITROGLYCERIN [Suspect]
     Active Substance: NITROGLYCERIN
     Route: 065
  305. OMEPRAZOLE MAGNESIUM [Suspect]
     Active Substance: OMEPRAZOLE MAGNESIUM
     Indication: Small intestine carcinoma
     Route: 065
  306. OMEPRAZOLE MAGNESIUM [Suspect]
     Active Substance: OMEPRAZOLE MAGNESIUM
     Indication: Hypertension
     Route: 065
  307. OMEPRAZOLE MAGNESIUM [Suspect]
     Active Substance: OMEPRAZOLE MAGNESIUM
     Indication: Duodenal ulcer
     Route: 065
  308. OMEPRAZOLE MAGNESIUM [Suspect]
     Active Substance: OMEPRAZOLE MAGNESIUM
     Indication: Coronary artery disease
     Dosage: 20 MG, Q12H (1 EVERY 12 HOURS)
     Route: 065
  309. OMEPRAZOLE MAGNESIUM [Suspect]
     Active Substance: OMEPRAZOLE MAGNESIUM
     Indication: Chest pain
     Route: 065
  310. OMEPRAZOLE MAGNESIUM [Suspect]
     Active Substance: OMEPRAZOLE MAGNESIUM
     Indication: Angina pectoris
     Route: 048
  311. OMEPRAZOLE MAGNESIUM [Suspect]
     Active Substance: OMEPRAZOLE MAGNESIUM
     Route: 065
  312. OMEPRAZOLE MAGNESIUM [Suspect]
     Active Substance: OMEPRAZOLE MAGNESIUM
     Route: 065
  313. OMEPRAZOLE MAGNESIUM [Suspect]
     Active Substance: OMEPRAZOLE MAGNESIUM
     Route: 065
  314. OMEPRAZOLE MAGNESIUM [Suspect]
     Active Substance: OMEPRAZOLE MAGNESIUM
     Route: 065
  315. OMEPRAZOLE MAGNESIUM [Suspect]
     Active Substance: OMEPRAZOLE MAGNESIUM
     Route: 065
  316. OXAZEPAM [Suspect]
     Active Substance: OXAZEPAM
     Indication: Product used for unknown indication
     Route: 065
  317. OXAZEPAM [Suspect]
     Active Substance: OXAZEPAM
     Indication: Insomnia
     Route: 065
  318. OXAZEPAM [Suspect]
     Active Substance: OXAZEPAM
     Indication: Hypertension
     Route: 065
  319. OXAZEPAM [Suspect]
     Active Substance: OXAZEPAM
     Indication: Coronary artery disease
     Route: 065
  320. OXAZEPAM [Suspect]
     Active Substance: OXAZEPAM
     Indication: Cerebrovascular accident
     Route: 048
  321. OXAZEPAM [Suspect]
     Active Substance: OXAZEPAM
     Indication: Angina pectoris
     Route: 048
  322. OXAZEPAM [Suspect]
     Active Substance: OXAZEPAM
     Route: 048
  323. OXAZEPAM [Suspect]
     Active Substance: OXAZEPAM
     Route: 065
  324. OXAZEPAM [Suspect]
     Active Substance: OXAZEPAM
     Route: 065
  325. PERPHENAZINE [Suspect]
     Active Substance: PERPHENAZINE
     Indication: Insomnia
     Route: 065
  326. PERSANTINE [Suspect]
     Active Substance: DIPYRIDAMOLE
     Indication: Product used for unknown indication
     Route: 065
  327. PERSANTINE [Suspect]
     Active Substance: DIPYRIDAMOLE
     Indication: Cerebrovascular accident
     Route: 065
  328. PERSANTINE [Suspect]
     Active Substance: DIPYRIDAMOLE
     Route: 065
  329. PHENOLPHTHALEIN [Suspect]
     Active Substance: PHENOLPHTHALEIN
     Indication: Pain
     Route: 065
  330. PHENYLEPHRINE HYDROCHLORIDE [Suspect]
     Active Substance: PHENYLEPHRINE HYDROCHLORIDE
     Indication: Product used for unknown indication
     Route: 065
  331. PHENYLEPHRINE HYDROCHLORIDE [Suspect]
     Active Substance: PHENYLEPHRINE HYDROCHLORIDE
     Indication: Pain
     Route: 065
  332. HERBALS\PLANTAGO OVATA LEAF [Suspect]
     Active Substance: HERBALS\PLANTAGO OVATA LEAF
     Indication: Product used for unknown indication
     Dosage: 500 MG, Q8H (1 EVERY 8 HOURS)
     Route: 065
  333. HERBALS\PLANTAGO OVATA LEAF [Suspect]
     Active Substance: HERBALS\PLANTAGO OVATA LEAF
     Route: 065
  334. POLYSORBATE 20 [Suspect]
     Active Substance: POLYSORBATE 20
     Indication: Insomnia
     Route: 065
  335. POLYSORBATE 40 [Suspect]
     Active Substance: POLYSORBATE 40
     Indication: Insomnia
     Route: 065
  336. POLYSORBATE 80 [Suspect]
     Active Substance: POLYSORBATE 80
     Indication: Insomnia
     Route: 065
  337. POLYSORBATE 85 [Suspect]
     Active Substance: POLYSORBATE 85
     Indication: Insomnia
     Route: 065
  338. POTASSIUM SORBATE [Suspect]
     Active Substance: POTASSIUM SORBATE
     Indication: Product used for unknown indication
     Route: 065
  339. QUINAPRIL [Suspect]
     Active Substance: QUINAPRIL
     Indication: Seizure prophylaxis
     Route: 065
  340. QUINAPRIL [Suspect]
     Active Substance: QUINAPRIL
     Indication: Seizure
     Route: 065
  341. QUINAPRIL [Suspect]
     Active Substance: QUINAPRIL
     Indication: Pain
     Dosage: 200 MG, Q6H (1 EVERY 6 HOUR)
     Route: 065
  342. QUINAPRIL [Suspect]
     Active Substance: QUINAPRIL
     Indication: Insomnia
     Route: 065
  343. QUINAPRIL [Suspect]
     Active Substance: QUINAPRIL
     Indication: Hypertension
     Route: 065
  344. QUINAPRIL [Suspect]
     Active Substance: QUINAPRIL
     Indication: Fibromyalgia
     Route: 065
  345. QUINAPRIL [Suspect]
     Active Substance: QUINAPRIL
     Indication: Coronary artery disease
     Route: 065
  346. QUINAPRIL [Suspect]
     Active Substance: QUINAPRIL
     Indication: Chest pain
     Route: 065
  347. QUINAPRIL [Suspect]
     Active Substance: QUINAPRIL
     Indication: Cerebrovascular accident
     Route: 065
  348. QUINAPRIL [Suspect]
     Active Substance: QUINAPRIL
     Indication: Angina pectoris
     Route: 065
  349. QUINAPRIL HYDROCHLORIDE [Suspect]
     Active Substance: QUINAPRIL HYDROCHLORIDE
     Indication: Seizure prophylaxis
     Route: 065
  350. QUINAPRIL HYDROCHLORIDE [Suspect]
     Active Substance: QUINAPRIL HYDROCHLORIDE
     Indication: Prophylaxis
     Route: 065
  351. QUINAPRIL HYDROCHLORIDE [Suspect]
     Active Substance: QUINAPRIL HYDROCHLORIDE
     Indication: Product used for unknown indication
     Route: 065
  352. QUINAPRIL HYDROCHLORIDE [Suspect]
     Active Substance: QUINAPRIL HYDROCHLORIDE
     Indication: Pain
     Route: 065
  353. QUINAPRIL HYDROCHLORIDE [Suspect]
     Active Substance: QUINAPRIL HYDROCHLORIDE
     Indication: Insomnia
     Route: 065
  354. QUINAPRIL HYDROCHLORIDE [Suspect]
     Active Substance: QUINAPRIL HYDROCHLORIDE
     Indication: Hypertension
     Route: 065
  355. QUINAPRIL HYDROCHLORIDE [Suspect]
     Active Substance: QUINAPRIL HYDROCHLORIDE
     Indication: Coronary artery disease
     Route: 065
  356. QUINAPRIL HYDROCHLORIDE [Suspect]
     Active Substance: QUINAPRIL HYDROCHLORIDE
     Indication: Cerebrovascular accident
     Route: 065
  357. QUINAPRIL HYDROCHLORIDE [Suspect]
     Active Substance: QUINAPRIL HYDROCHLORIDE
     Indication: Angina pectoris
     Route: 065
  358. QUINAPRIL HYDROCHLORIDE [Suspect]
     Active Substance: QUINAPRIL HYDROCHLORIDE
     Route: 065
  359. QUININE [Suspect]
     Active Substance: QUININE
     Indication: Pain
     Route: 065
  360. SALICYLAMIDE [Suspect]
     Active Substance: SALICYLAMIDE
     Indication: Pain
     Route: 065
  361. DOCUSATE SODIUM\SENNOSIDES A AND B [Suspect]
     Active Substance: DOCUSATE SODIUM\SENNOSIDES A AND B
     Indication: Constipation
     Route: 065
  362. SENNOSIDES [Suspect]
     Active Substance: SENNOSIDES
     Indication: Pain
     Route: 065
  363. SPIRIVA [Suspect]
     Active Substance: TIOTROPIUM BROMIDE MONOHYDRATE
     Indication: Constipation
     Route: 065
  364. SPIRIVA [Suspect]
     Active Substance: TIOTROPIUM BROMIDE MONOHYDRATE
     Indication: Chronic obstructive pulmonary disease
     Route: 065
  365. SPIRIVA [Suspect]
     Active Substance: TIOTROPIUM BROMIDE MONOHYDRATE
     Indication: Asthma
     Route: 065
  366. SPIRIVA [Suspect]
     Active Substance: TIOTROPIUM BROMIDE MONOHYDRATE
     Route: 048
  367. SPIRIVA [Suspect]
     Active Substance: TIOTROPIUM BROMIDE MONOHYDRATE
     Route: 065
  368. SPIRIVA [Suspect]
     Active Substance: TIOTROPIUM BROMIDE MONOHYDRATE
     Route: 065
  369. SPIRIVA [Suspect]
     Active Substance: TIOTROPIUM BROMIDE MONOHYDRATE
     Route: 048
  370. SPIRIVA [Suspect]
     Active Substance: TIOTROPIUM BROMIDE MONOHYDRATE
     Route: 065
  371. CRANBERRY [Suspect]
     Active Substance: CRANBERRY
     Indication: Product used for unknown indication
     Route: 065
  372. CRANBERRY [Suspect]
     Active Substance: CRANBERRY
     Indication: Chronic obstructive pulmonary disease
     Dosage: 500 MG, Q8H (1 EVERY 8 HOURS)
     Route: 065
  373. CRANBERRY [Suspect]
     Active Substance: CRANBERRY
     Indication: Bladder disorder
     Route: 065
  374. CRANBERRY [Suspect]
     Active Substance: CRANBERRY
     Dosage: 500 MG, Q8H (1 EVERY 8 HOURS)
     Route: 065
  375. CRANBERRY [Suspect]
     Active Substance: CRANBERRY
     Route: 065
  376. CRANBERRY [Suspect]
     Active Substance: CRANBERRY
     Route: 065
  377. CRANBERRY [Suspect]
     Active Substance: CRANBERRY
     Dosage: 500 MG, Q8H (1 EVERY 8 HOURS)
     Route: 065
  378. VITAMIN C [Suspect]
     Active Substance: ASCORBIC ACID
     Indication: Product used for unknown indication
     Route: 065
  379. ZINC [Suspect]
     Active Substance: ZINC
     Indication: Product used for unknown indication
     Route: 065
  380. ZINC SALICYLATE [Concomitant]
     Active Substance: ZINC SALICYLATE
     Indication: Product used for unknown indication
     Route: 065
  381. PHOSPHORIC ACID [Concomitant]
     Active Substance: PHOSPHORIC ACID
     Indication: Product used for unknown indication
     Route: 065
  382. CARBAMAZEPINE [Suspect]
     Active Substance: CARBAMAZEPINE
     Indication: Seizure prophylaxis
     Route: 065

REACTIONS (23)
  - Constipation [Recovered/Resolved]
  - Fall [Recovered/Resolved]
  - Balance disorder [Recovered/Resolved]
  - Blood calcium decreased [Recovered/Resolved]
  - Cognitive disorder [Recovered/Resolved]
  - Creatinine renal clearance decreased [Recovered/Resolved]
  - Depressed level of consciousness [Recovered/Resolved]
  - Drug interaction [Recovered/Resolved]
  - Dyspnoea [Recovered/Resolved]
  - Hypotension [Recovered/Resolved]
  - Mobility decreased [Recovered/Resolved]
  - Multiple drug therapy [Recovered/Resolved]
  - Toxicity to various agents [Recovered/Resolved]
  - Orthostatic hypotension [Recovered/Resolved]
  - Creatinine renal clearance increased [Recovered/Resolved]
  - Pain [Recovered/Resolved]
  - Renal function test abnormal [Recovered/Resolved]
  - Sedation complication [Recovered/Resolved]
  - Sedation [Recovered/Resolved]
  - Drug abuse [Recovered/Resolved]
  - Product use in unapproved indication [Recovered/Resolved]
  - Overdose [Recovered/Resolved]
  - Off label use [Recovered/Resolved]
